FAERS Safety Report 6638534-1 (Version None)
Quarter: 2010Q1

REPORT INFORMATION
  Report Type: 
  Country: None (occurrence: None)
  Receive Date: 20100317
  Receipt Date: 20100312
  Transmission Date: 20100710
  Serious: Yes (Other)
  Sender: FDA-Public Use
  Company Number: US-MERCK-1003USA01258

PATIENT
  Age: 52 Year
  Sex: Female

DRUGS (1)
  1. FOSAMAX [Suspect]
     Indication: OSTEOPENIA
     Route: 048
     Dates: start: 20031201, end: 20100101

REACTIONS (3)
  - DRUG INEFFECTIVE [None]
  - INTERVERTEBRAL DISC PROTRUSION [None]
  - NERVE COMPRESSION [None]
